FAERS Safety Report 9691970 (Version 1)
Quarter: 2013Q4

REPORT INFORMATION
  Report Type: Spontaneous
  Country: US (occurrence: US)
  Receive Date: 20131118
  Receipt Date: 20131118
  Transmission Date: 20140711
  Serious: No
  Sender: FDA-Public Use
  Company Number: US-B.I. PHARMACEUTICALS,INC./RIDGEFIELD-2013-BI-35723BP

PATIENT
  Sex: 0

DRUGS (2)
  1. FLOMAX CAPSULES [Suspect]
  2. AMIODARONE [Concomitant]

REACTIONS (2)
  - Dizziness [Unknown]
  - Balance disorder [Unknown]
